FAERS Safety Report 21131458 (Version 1)
Quarter: 2022Q3

REPORT INFORMATION
  Report Type: Spontaneous
  Country: US (occurrence: US)
  Receive Date: 20220726
  Receipt Date: 20220726
  Transmission Date: 20221026
  Serious: Yes (Death, Other)
  Sender: FDA-Public Use
  Company Number: US-MYLANLABS-2022M1081066

PATIENT
  Age: 2 Year
  Sex: Female

DRUGS (8)
  1. CISPLATIN [Suspect]
     Active Substance: CISPLATIN
     Indication: Ovarian germ cell teratoma stage III
     Dosage: UNK, CYCLE, PART OF AGCT1531 PROTOCOL- RECEIVED FOUR CYCLES
     Route: 042
  2. ETOPOSIDE [Suspect]
     Active Substance: ETOPOSIDE
     Indication: Ovarian germ cell teratoma stage III
     Dosage: UNK, CYCLE, PART OF AGCT1531 PROTOCOL- RECEIVED FOUR CYCLES
     Route: 042
  3. VINORELBINE [Suspect]
     Active Substance: VINORELBINE TARTRATE
     Indication: Ovarian germ cell teratoma stage III
     Dosage: PART OF ARST0921 PROTOCOL
     Route: 042
  4. BLEOMYCIN [Suspect]
     Active Substance: BLEOMYCIN SULFATE
     Indication: Ovarian germ cell teratoma stage III
     Dosage: UNK, CYCLE, PART OF AGCT1531 PROTOCOL- RECEIVED FOUR CYCLES
     Route: 042
  5. VINCRISTINE [Suspect]
     Active Substance: VINCRISTINE
     Indication: Ovarian germ cell teratoma stage III
     Dosage: PART OF D9803 PROTOCOL
     Route: 042
  6. DACTINOMYCIN [Suspect]
     Active Substance: DACTINOMYCIN
     Indication: Ovarian germ cell teratoma stage III
     Dosage: PART OF D9803 PROTOCOL
     Route: 042
  7. CYCLOPHOSPHAMIDE [Suspect]
     Active Substance: CYCLOPHOSPHAMIDE
     Indication: Ovarian germ cell teratoma stage III
     Dosage: PART OF D9803 AND ARST0921 PROTOCOL
     Route: 042
  8. TEMSIROLIMUS [Suspect]
     Active Substance: TEMSIROLIMUS
     Indication: Ovarian germ cell teratoma stage III
     Dosage: PART OF ARST0921 PROTOCOL
     Route: 042

REACTIONS (3)
  - Drug ineffective [Fatal]
  - Disease progression [Fatal]
  - Off label use [Unknown]
